FAERS Safety Report 9492957 (Version 3)
Quarter: 2013Q4

REPORT INFORMATION
  Report Type: Report from Study
  Country: RS (occurrence: RS)
  Receive Date: 20130902
  Receipt Date: 20131206
  Transmission Date: 20140711
  Serious: Yes (Death)
  Sender: FDA-Public Use
  Company Number: RS-ROCHE-1235218

PATIENT
  Age: 61 Year
  Sex: Male

DRUGS (8)
  1. RITUXIMAB [Suspect]
     Indication: NON-HODGKIN^S LYMPHOMA
     Route: 042
     Dates: start: 20090604, end: 20091021
  2. FLUDARABINE [Suspect]
     Indication: NON-HODGKIN^S LYMPHOMA
     Dosage: 50 MG PER DAY (D1 - D3)
     Route: 042
     Dates: start: 20090604, end: 20091021
  3. ENDOXAN [Concomitant]
     Indication: NON-HODGKIN^S LYMPHOMA
     Dosage: 500 MG PER DAY (D1 - D3)
     Route: 042
     Dates: start: 20090604, end: 20091021
  4. 5-FC [Concomitant]
     Dosage: LAST DOSE IN 2009
     Route: 065
  5. CYCLOPHOSPHAMIDE [Concomitant]
     Dosage: LAST DOSE IN 2009
     Route: 065
  6. DOXORUBICIN [Concomitant]
     Dosage: LAST DOSE IN 2009
     Route: 065
  7. VINCRISTINE [Concomitant]
     Dosage: LAST DOSE IN 2009
     Route: 065
  8. PREDNISONE [Concomitant]
     Dosage: LAST DOSE IN 2009
     Route: 065

REACTIONS (3)
  - Leukopenia [Fatal]
  - Thrombocytopenia [Fatal]
  - Acute myeloid leukaemia [Fatal]
